FAERS Safety Report 24768095 (Version 1)
Quarter: 2024Q4

REPORT INFORMATION
  Report Type: Spontaneous
  Country: US (occurrence: US)
  Receive Date: 20241223
  Receipt Date: 20241223
  Transmission Date: 20250114
  Serious: Yes (Other)
  Sender: COVIS PHARMA GMBH
  Company Number: US-Covis Pharma GmbH-2024COV01513

PATIENT
  Sex: Female

DRUGS (2)
  1. FERAHEME [Suspect]
     Active Substance: FERUMOXYTOL NON-STOICHIOMETRIC MAGNETITE
  2. INJECTAFER [Suspect]
     Active Substance: FERRIC CARBOXYMALTOSE

REACTIONS (7)
  - Epstein-Barr virus infection [Unknown]
  - Methaemoglobinaemia [Unknown]
  - Fungal infection [Unknown]
  - Urinary tract infection [Unknown]
  - Infection [Unknown]
  - White blood cell count increased [Unknown]
  - Pyrexia [Unknown]
